FAERS Safety Report 10853233 (Version 2)
Quarter: 2015Q2

REPORT INFORMATION
  Report Type: Spontaneous
  Country: US (occurrence: US)
  Receive Date: 20150223
  Receipt Date: 20150515
  Transmission Date: 20150821
  Serious: Yes (Hospitalization, Other)
  Sender: FDA-Public Use
  Company Number: US-AMGEN-USASP2015015786

PATIENT
  Age: 66 Year
  Sex: Female

DRUGS (2)
  1. ENBREL [Suspect]
     Active Substance: ETANERCEPT
     Indication: PSORIATIC ARTHROPATHY
     Dosage: UNK UNK, UNK
     Route: 065
  2. ENBREL [Suspect]
     Active Substance: ETANERCEPT
     Indication: PSORIASIS
     Dosage: 50 MG, QWK
     Route: 065
     Dates: start: 20080201

REACTIONS (11)
  - Rheumatoid arthritis [Recovered/Resolved]
  - Interstitial lung disease [Recovered/Resolved]
  - Fall [Recovered/Resolved]
  - Back pain [Not Recovered/Not Resolved]
  - Spinal fracture [Recovered/Resolved]
  - Pain in extremity [Not Recovered/Not Resolved]
  - Musculoskeletal pain [Not Recovered/Not Resolved]
  - Cerebrovascular accident [Recovered/Resolved]
  - Psoriasis [Unknown]
  - Dry mouth [Not Recovered/Not Resolved]
  - Device dislocation [Recovered/Resolved]

NARRATIVE: CASE EVENT DATE: 2010
